FAERS Safety Report 10474133 (Version 1)
Quarter: 2014Q3

REPORT INFORMATION
  Report Type: Spontaneous
  Country: US (occurrence: US)
  Receive Date: 20140924
  Receipt Date: 20140924
  Transmission Date: 20150326
  Serious: No
  Sender: FDA-Public Use
  Company Number: US-ASTRAZENECA-2013SE69916

PATIENT
  Age: 50 Year
  Sex: Female
  Weight: 69.9 kg

DRUGS (5)
  1. LISINOPRIL. [Suspect]
     Active Substance: LISINOPRIL
     Route: 048
  2. METFORMIN [Concomitant]
     Active Substance: METFORMIN HYDROCHLORIDE
  3. TOPROL XL [Suspect]
     Active Substance: METOPROLOL SUCCINATE
     Indication: BLOOD PRESSURE ABNORMAL
     Route: 048
     Dates: start: 201208
  4. INSULIN [Concomitant]
     Active Substance: INSULIN NOS
  5. OTHER BP MEDICATIONS [Concomitant]

REACTIONS (2)
  - Drug dose omission [Unknown]
  - Headache [Unknown]
